FAERS Safety Report 18693139 (Version 2)
Quarter: 2021Q1

REPORT INFORMATION
  Report Type: Spontaneous
  Country: UZ (occurrence: UZ)
  Receive Date: 20210104
  Receipt Date: 20210325
  Transmission Date: 20210419
  Serious: Yes (Other)
  Sender: FDA-Public Use
  Company Number: UZ-JNJFOC-20201247783

PATIENT
  Age: 71 Year
  Sex: Female
  Weight: 60 kg

DRUGS (9)
  1. SIRTURO [Suspect]
     Active Substance: BEDAQUILINE FUMARATE
     Indication: TUBERCULOSIS
     Route: 048
     Dates: start: 20201112
  2. DELAMANID [Suspect]
     Active Substance: DELAMANID
     Route: 048
     Dates: start: 20201228
  3. DELAMANID [Suspect]
     Active Substance: DELAMANID
     Route: 048
     Dates: start: 20201231
  4. LINEZOLID. [Suspect]
     Active Substance: LINEZOLID
     Indication: TUBERCULOSIS
     Route: 048
     Dates: start: 20201113
  5. DELAMANID [Suspect]
     Active Substance: DELAMANID
     Route: 048
     Dates: start: 20201230
  6. CLOFAZIMINE [Suspect]
     Active Substance: CLOFAZIMINE
     Indication: TUBERCULOSIS
     Route: 048
     Dates: start: 20201111
  7. DELAMANID [Suspect]
     Active Substance: DELAMANID
     Route: 048
     Dates: start: 20201229
  8. CYCLOSERINE. [Suspect]
     Active Substance: CYCLOSERINE
     Indication: TUBERCULOSIS
     Route: 048
     Dates: start: 20201111
  9. DELAMANID [Suspect]
     Active Substance: DELAMANID
     Indication: TUBERCULOSIS
     Route: 048
     Dates: start: 20201114, end: 20201115

REACTIONS (1)
  - Syncope [Recovered/Resolved]

NARRATIVE: CASE EVENT DATE: 20201115
